FAERS Safety Report 8955545 (Version 2)
Quarter: 2013Q1

REPORT INFORMATION
  Report Type: Spontaneous
  Country: DE (occurrence: DE)
  Receive Date: 20121207
  Receipt Date: 20130125
  Transmission Date: 20140127
  Serious: Yes (Death, Other)
  Sender: FDA-Public Use
  Company Number: DE-ROCHE-1163547

PATIENT
  Sex: Female
  Weight: 62 kg

DRUGS (1)
  1. ROACTEMRA [Suspect]
     Indication: RHEUMATOID ARTHRITIS
     Dosage: LAST DOSE OF SAE: 05/SEP/2012
     Route: 042
     Dates: start: 20120612

REACTIONS (5)
  - Neuroendocrine tumour [Fatal]
  - Liver function test abnormal [Unknown]
  - Blood glucose abnormal [Unknown]
  - Gamma-glutamyltransferase increased [Fatal]
  - Transaminases increased [Fatal]
